FAERS Safety Report 16360148 (Version 3)
Quarter: 2019Q2

REPORT INFORMATION
  Report Type: Spontaneous
  Country: DE (occurrence: DE)
  Receive Date: 20190528
  Receipt Date: 20190626
  Transmission Date: 20190711
  Serious: Yes (Death, Hospitalization, Disabling, Other)
  Sender: FDA-Public Use
  Company Number: DE-ABBVIE-19K-062-2798375-00

PATIENT
  Age: 66 Year
  Sex: Female
  Weight: 98 kg

DRUGS (26)
  1. PREDNISOLON [Concomitant]
     Active Substance: PREDNISOLONE
     Indication: PRODUCT USED FOR UNKNOWN INDICATION
     Dates: start: 201011
  2. NITROLINGUAL [Concomitant]
     Active Substance: NITROGLYCERIN
     Indication: PRODUCT USED FOR UNKNOWN INDICATION
     Dosage: AS NEEDED
  3. HUMIRA [Suspect]
     Active Substance: ADALIMUMAB
     Indication: SPONDYLITIS
     Route: 058
     Dates: start: 20130611, end: 20141009
  4. DEKRISTOL [Concomitant]
     Active Substance: CHOLECALCIFEROL
     Indication: PRODUCT USED FOR UNKNOWN INDICATION
  5. XARELTO [Concomitant]
     Active Substance: RIVAROXABAN
     Indication: PRODUCT USED FOR UNKNOWN INDICATION
  6. TOREM [Concomitant]
     Active Substance: TORSEMIDE
     Indication: PRODUCT USED FOR UNKNOWN INDICATION
  7. CANDESARTAN 1A PHARMA [Concomitant]
     Active Substance: CANDESARTAN CILEXETIL
     Indication: PRODUCT USED FOR UNKNOWN INDICATION
  8. HUMIRA [Suspect]
     Active Substance: ADALIMUMAB
     Indication: PSORIATIC ARTHROPATHY
     Route: 058
     Dates: start: 20150729, end: 20190411
  9. L-THYROX HEXAL [Concomitant]
     Active Substance: LEVOTHYROXINE SODIUM
     Indication: PRODUCT USED FOR UNKNOWN INDICATION
  10. FOLSAN [Concomitant]
     Active Substance: FOLIC ACID
     Indication: PRODUCT USED FOR UNKNOWN INDICATION
  11. JURNISTA [Concomitant]
     Active Substance: HYDROMORPHONE HYDROCHLORIDE
  12. PROCORALAN [Concomitant]
     Active Substance: IVABRADINE
     Dates: start: 201812
  13. SALBUHEXAL [Concomitant]
     Active Substance: ALBUTEROL
     Indication: PRODUCT USED FOR UNKNOWN INDICATION
     Dosage: AS NEEDED
  14. CLOPIDOGREL BIOMO [Concomitant]
     Indication: PRODUCT USED FOR UNKNOWN INDICATION
  15. PROCORALAN [Concomitant]
     Active Substance: IVABRADINE
     Indication: PRODUCT USED FOR UNKNOWN INDICATION
     Dosage: { 5 MG TWICE A DAY
     Dates: end: 201812
  16. LANSOPRAZOL 1 A PHARMA [Concomitant]
     Indication: PRODUCT USED FOR UNKNOWN INDICATION
  17. JURNISTA [Concomitant]
     Active Substance: HYDROMORPHONE HYDROCHLORIDE
     Indication: PRODUCT USED FOR UNKNOWN INDICATION
  18. ATORVASTATIN 1A PHARMA [Concomitant]
     Active Substance: ATORVASTATIN
     Indication: PRODUCT USED FOR UNKNOWN INDICATION
  19. DEKRISTOL [Concomitant]
     Active Substance: CHOLECALCIFEROL
     Indication: PRODUCT USED FOR UNKNOWN INDICATION
  20. CIMZIA [Concomitant]
     Active Substance: CERTOLIZUMAB PEGOL
     Indication: PRODUCT USED FOR UNKNOWN INDICATION
     Dates: start: 20150601, end: 20150729
  21. MOLSIDOMIN 1A PHARMA GMBH [Concomitant]
     Indication: PRODUCT USED FOR UNKNOWN INDICATION
  22. ALLOPURINOL RATIOPHARM [Concomitant]
     Indication: PRODUCT USED FOR UNKNOWN INDICATION
  23. ENBREL [Concomitant]
     Active Substance: ETANERCEPT
     Indication: PRODUCT USED FOR UNKNOWN INDICATION
     Dates: start: 20141009, end: 20150601
  24. ISOSORBID DINITRATE [Concomitant]
     Active Substance: ISOSORBIDE DINITRATE
     Indication: PRODUCT USED FOR UNKNOWN INDICATION
  25. NEBIVOLOL ACTAVIS [Concomitant]
     Active Substance: NEBIVOLOL
     Indication: PRODUCT USED FOR UNKNOWN INDICATION
  26. UMECLIDINIUM [Concomitant]
     Active Substance: UMECLIDINIUM BROMIDE
     Indication: PRODUCT USED FOR UNKNOWN INDICATION

REACTIONS (28)
  - Blood glucose increased [Unknown]
  - Blood thyroid stimulating hormone increased [Unknown]
  - International normalised ratio increased [Unknown]
  - Lung disorder [Unknown]
  - Pulmonary fibrosis [Unknown]
  - Cardiac failure chronic [Unknown]
  - Coronary artery occlusion [Unknown]
  - Coronary artery disease [Unknown]
  - Blood urea increased [Unknown]
  - Diastolic dysfunction [Unknown]
  - Aortic valve sclerosis [Unknown]
  - Xanthelasma [Unknown]
  - Blood creatinine increased [Unknown]
  - White blood cell count increased [Unknown]
  - General physical health deterioration [Unknown]
  - Coronary artery stenosis [Unknown]
  - Tricuspid valve incompetence [Unknown]
  - Death [Fatal]
  - Mitral valve incompetence [Unknown]
  - Troponin T increased [Unknown]
  - Myocardial ischaemia [Unknown]
  - Respiratory tract infection [Unknown]
  - Creutzfeldt-Jakob disease [Not Recovered/Not Resolved]
  - Bundle branch block left [Unknown]
  - Left ventricular hypertrophy [Unknown]
  - Acute myocardial infarction [Unknown]
  - Breath sounds abnormal [Unknown]
  - Thyroidectomy [Unknown]

NARRATIVE: CASE EVENT DATE: 201606
